FAERS Safety Report 7342557-7 (Version None)
Quarter: 2011Q1

REPORT INFORMATION
  Report Type: 
  Country: None (occurrence: None)
  Receive Date: 20110310
  Receipt Date: 20110307
  Transmission Date: 20110831
  Serious: No
  Sender: FDA-Public Use
  Company Number: US-TEVA-270355USA

PATIENT
  Sex: Female
  Weight: 86.26 kg

DRUGS (2)
  1. HERBAL DIET PILL [Concomitant]
     Indication: OBESITY
  2. PLAN B ONE-STEP [Suspect]
     Indication: POST COITAL CONTRACEPTION
     Route: 048
     Dates: start: 20110306, end: 20110306

REACTIONS (4)
  - MENSTRUATION IRREGULAR [None]
  - NAUSEA [None]
  - VOMITING [None]
  - BREAST TENDERNESS [None]
